FAERS Safety Report 8472242-X (Version None)
Quarter: 2012Q2

REPORT INFORMATION
  Report Type: 
  Country: None (occurrence: None)
  Receive Date: 20120627
  Receipt Date: 20110628
  Transmission Date: 20120825
  Serious: No
  Sender: FDA-Public Use
  Company Number: US-MYLANLABS-2011S1013598

PATIENT
  Age: 45 Year
  Sex: Male

DRUGS (1)
  1. METHOTREXATE [Suspect]
     Route: 048
     Dates: start: 20100101

REACTIONS (1)
  - DRUG LEVEL BELOW THERAPEUTIC [None]
